FAERS Safety Report 14935611 (Version 1)
Quarter: 2018Q2

REPORT INFORMATION
  Report Type: Report from Study
  Country: US (occurrence: US)
  Receive Date: 20180524
  Receipt Date: 20180524
  Transmission Date: 20180711
  Serious: Yes (Other)
  Sender: FDA-Public Use
  Company Number: US-GILEAD-2017-0305895

PATIENT
  Age: 77 Year
  Sex: Female

DRUGS (16)
  1. DEXAMETHASONE. [Concomitant]
     Active Substance: DEXAMETHASONE
  2. METOPROLOL. [Concomitant]
     Active Substance: METOPROLOL
  3. LIPITOR [Concomitant]
     Active Substance: ATORVASTATIN CALCIUM
  4. AMBRISENTAN [Suspect]
     Active Substance: AMBRISENTAN
     Indication: PRODUCT USED FOR UNKNOWN INDICATION
     Dosage: 10 MG, QD
     Route: 065
     Dates: start: 20161003, end: 20171016
  5. LEVALBUTEROL                       /01419301/ [Concomitant]
     Active Substance: LEVALBUTEROL
  6. ALLOPURINOL. [Concomitant]
     Active Substance: ALLOPURINOL
  7. PLAVIX [Concomitant]
     Active Substance: CLOPIDOGREL BISULFATE
  8. LASIX [Concomitant]
     Active Substance: FUROSEMIDE
  9. STALEVO                            /01530202/ [Concomitant]
     Active Substance: LEVOCETIRIZINE DIHYDROCHLORIDE
  10. LEVOTHYROXINE. [Concomitant]
     Active Substance: LEVOTHYROXINE
  11. WARFARIN [Concomitant]
     Active Substance: WARFARIN
  12. AMLODIPINE [Concomitant]
     Active Substance: AMLODIPINE BESYLATE
  13. CHLORTHALIDONE. [Concomitant]
     Active Substance: CHLORTHALIDONE
  14. PANTOPRAZOLE [Concomitant]
     Active Substance: PANTOPRAZOLE
  15. POTASSIUM [Concomitant]
     Active Substance: POTASSIUM
  16. OXYCODONE [Concomitant]
     Active Substance: OXYCODONE

REACTIONS (2)
  - Drug dose omission [Unknown]
  - Internal haemorrhage [Unknown]

NARRATIVE: CASE EVENT DATE: 20171016
